FAERS Safety Report 24540773 (Version 3)
Quarter: 2025Q1

REPORT INFORMATION
  Report Type: Report from Study
  Country: US (occurrence: US)
  Receive Date: 20241023
  Receipt Date: 20250108
  Transmission Date: 20250409
  Serious: Yes (Hospitalization, Other)
  Sender: MERCK
  Company Number: US-009507513-2410USA009587

PATIENT
  Sex: Male

DRUGS (2)
  1. SOTATERCEPT [Suspect]
     Active Substance: SOTATERCEPT
     Indication: Pulmonary arterial hypertension
     Dosage: 2 MILLILITER, Q3W; STRENGTH: 60 MG
     Route: 058
     Dates: start: 202409, end: 2024
  2. REMODULIN [Suspect]
     Active Substance: TREPROSTINIL
     Indication: Pulmonary arterial hypertension
     Route: 058
     Dates: start: 202104

REACTIONS (3)
  - Atrial fibrillation [Unknown]
  - Gastric varices haemorrhage [Recovering/Resolving]
  - Laboratory test abnormal [Unknown]

NARRATIVE: CASE EVENT DATE: 20240101
